FAERS Safety Report 25050324 (Version 1)
Quarter: 2025Q1

REPORT INFORMATION
  Report Type: Spontaneous
  Country: US (occurrence: None)
  Receive Date: 20250306
  Receipt Date: 20250306
  Transmission Date: 20250409
  Serious: Yes (Life-Threatening, Hospitalization)
  Sender: FDA-CTU
  Company Number: None

PATIENT
  Age: 86 Year
  Sex: Female
  Weight: 49.5 kg

DRUGS (10)
  1. MIRABEGRON [Suspect]
     Active Substance: MIRABEGRON
     Indication: Hypertonic bladder
     Route: 048
     Dates: start: 20250217, end: 20250224
  2. LEXAPRO [Concomitant]
     Active Substance: ESCITALOPRAM OXALATE
  3. FOSAMAX [Concomitant]
     Active Substance: ALENDRONATE SODIUM
  4. METHIMAZOLE [Concomitant]
     Active Substance: METHIMAZOLE
  5. glaucoma eyedrops dry eyes [Concomitant]
  6. VITAMINS [Concomitant]
     Active Substance: VITAMINS
  7. gluosamine [Concomitant]
  8. MINERALS\VITAMINS [Concomitant]
     Active Substance: MINERALS\VITAMINS
  9. CALCIUM\CHOLECALCIFEROL [Concomitant]
     Active Substance: CALCIUM\CHOLECALCIFEROL
  10. VITAMIN B [Concomitant]
     Active Substance: VITAMIN B

REACTIONS (4)
  - Pharyngeal swelling [None]
  - Swollen tongue [None]
  - Angioedema [None]
  - Anaphylactic shock [None]

NARRATIVE: CASE EVENT DATE: 20250224
